FAERS Safety Report 20949303 (Version 2)
Quarter: 2024Q2

REPORT INFORMATION
  Report Type: Spontaneous
  Country: GB (occurrence: GB)
  Receive Date: 20220613
  Receipt Date: 20240521
  Transmission Date: 20240715
  Serious: Yes (Other)
  Sender: FDA-Public Use
  Company Number: GB-TEVA-2022-GB-2045306

PATIENT
  Sex: Female

DRUGS (5)
  1. LAMOTRIGINE [Suspect]
     Active Substance: LAMOTRIGINE
     Indication: Petit mal epilepsy
     Route: 065
  2. VALPROATE SODIUM [Suspect]
     Active Substance: VALPROATE SODIUM
     Indication: Petit mal epilepsy
     Route: 065
  3. PYRIDOXINE [Suspect]
     Active Substance: PYRIDOXINE
     Indication: Petit mal epilepsy
     Dosage: DOSAGE TEXT: TEST DOSE
     Route: 048
  4. PYRIDOXINE [Suspect]
     Active Substance: PYRIDOXINE
     Indication: Petit mal epilepsy
     Route: 048
  5. ACETAZOLAMIDE [Suspect]
     Active Substance: ACETAZOLAMIDE
     Indication: Petit mal epilepsy
     Route: 065

REACTIONS (3)
  - Drug ineffective [Unknown]
  - Off label use [Unknown]
  - Drug ineffective for unapproved indication [Unknown]
